FAERS Safety Report 11312442 (Version 1)
Quarter: 2015Q3

REPORT INFORMATION
  Report Type: Spontaneous
  Country: US (occurrence: None)
  Receive Date: 20150724
  Receipt Date: 20150724
  Transmission Date: 20151125
  Serious: No
  Sender: FDA-Public Use
  Company Number: None

PATIENT
  Age: 84 Year
  Sex: Male
  Weight: 113.4 kg

DRUGS (22)
  1. ASPIRIN. [Concomitant]
     Active Substance: ASPIRIN
  2. ZINC [Concomitant]
     Active Substance: ZINC\ZINC CHLORIDE
  3. OMEPRAZOLE. [Concomitant]
     Active Substance: OMEPRAZOLE
  4. CRESTOR [Concomitant]
     Active Substance: ROSUVASTATIN CALCIUM
  5. MULTIVITAMINS [Concomitant]
     Active Substance: VITAMINS
  6. FISH OIL [Concomitant]
     Active Substance: FISH OIL
  7. POTASSIUM [Concomitant]
     Active Substance: POTASSIUM
  8. BRIMONIDINE [Concomitant]
     Active Substance: BRIMONIDINE TARTRATE
  9. LATANAPROST [Concomitant]
  10. IBUPROFEN. [Concomitant]
     Active Substance: IBUPROFEN
  11. RANEXA [Suspect]
     Active Substance: RANOLAZINE
     Indication: ANGINA PECTORIS
     Dosage: 500 MG 1 P ILL AM + PM 2 TIMES DAILY BY MOUTH
     Route: 048
     Dates: start: 20150303, end: 20150307
  12. ISOSORBIDE. [Concomitant]
     Active Substance: ISOSORBIDE
  13. TEMAZEPINE [Concomitant]
  14. EODOLZE [Concomitant]
  15. COQ10 [Concomitant]
     Active Substance: UBIDECARENONE
  16. RESVERATROL [Concomitant]
     Active Substance: RESVERATROL
  17. CLOPIDOGREL [Concomitant]
     Active Substance: CLOPIDOGREL BISULFATE
  18. ENALAPRIL [Concomitant]
     Active Substance: ENALAPRIL
  19. CARVEDILOL. [Concomitant]
     Active Substance: CARVEDILOL
  20. NITROSTAT [Concomitant]
     Active Substance: NITROGLYCERIN
  21. CPAP MACHINE [Concomitant]
  22. VITAMIN C [Concomitant]
     Active Substance: ASCORBIC ACID

REACTIONS (3)
  - Urine output increased [None]
  - Constipation [None]
  - Intestinal obstruction [None]

NARRATIVE: CASE EVENT DATE: 20150307
